FAERS Safety Report 8851179 (Version 1)
Quarter: 2012Q4

REPORT INFORMATION
  Report Type: 
  Country: US (occurrence: US)
  Receive Date: 20121019
  Receipt Date: 20121019
  Transmission Date: 20130627
  Serious: Yes (Hospitalization)
  Sender: FDA-Public Use
  Company Number: US-BRISTOL-MYERS SQUIBB COMPANY-16754194

PATIENT
  Age: 44 Year
  Sex: Male

DRUGS (6)
  1. YERVOY [Suspect]
     Indication: METASTATIC MALIGNANT MELANOMA
     Dosage: No of inf:3; received third dose on 04Jul2012.
4 times
     Route: 042
     Dates: start: 20120516, end: 20120727
  2. XANAX [Concomitant]
     Dosage: Q4
  3. NORCO [Concomitant]
     Dosage: 1df=10/325mg
  4. NAPROXEN [Concomitant]
  5. ACYCLOVIR [Concomitant]
     Dosage: for 14dys
  6. SYNTHROID [Concomitant]

REACTIONS (1)
  - Metastases to pituitary gland [Unknown]
